FAERS Safety Report 16650584 (Version 1)
Quarter: 2019Q3

REPORT INFORMATION
  Report Type: Spontaneous
  Country: TR (occurrence: TR)
  Receive Date: 20190731
  Receipt Date: 20190731
  Transmission Date: 20191004
  Serious: Yes (Other)
  Sender: FDA-Public Use
  Company Number: PHHY2019TR172428

PATIENT
  Age: 34 Year
  Sex: Male

DRUGS (1)
  1. SECUKINUMAB. [Suspect]
     Active Substance: SECUKINUMAB
     Indication: ANKYLOSING SPONDYLITIS
     Dosage: 150 MG, QW (4 LOADING DOSES)
     Route: 065

REACTIONS (12)
  - Genital ulceration [Recovered/Resolved]
  - White blood cells stool [Recovered/Resolved]
  - Ileal ulcer [Recovered/Resolved]
  - Pyrexia [Recovered/Resolved]
  - Oedema [Recovered/Resolved]
  - Connective tissue disorder [Recovered/Resolved]
  - Arthritis [Recovered/Resolved]
  - Aphthous ulcer [Recovered/Resolved]
  - Behcet^s syndrome [Recovered/Resolved]
  - Gastrointestinal disorder [Recovered/Resolved]
  - Colitis [Recovered/Resolved]
  - Mouth ulceration [Recovered/Resolved]
